FAERS Safety Report 6772602-9 (Version None)
Quarter: 2010Q2

REPORT INFORMATION
  Report Type: 
  Country: None (occurrence: None)
  Receive Date: 20100616
  Receipt Date: 20090427
  Transmission Date: 20101027
  Serious: No
  Sender: FDA-Public Use
  Company Number: US-ASTRAZENECA-2009UW10404

PATIENT
  Age: 75 Year
  Sex: Female
  Weight: 89.8 kg

DRUGS (8)
  1. PULMICORT RESPULES [Suspect]
     Indication: ASTHMA
     Route: 055
  2. BROVANA [Concomitant]
  3. SPIRIVA [Concomitant]
  4. GLIPIZIDE [Concomitant]
  5. FUROSEMIDE [Concomitant]
  6. SPIRONOLACTONE [Concomitant]
  7. SIMVASTATIN [Concomitant]
  8. COLCHICINE [Concomitant]

REACTIONS (1)
  - DRY MOUTH [None]
